FAERS Safety Report 23076461 (Version 1)
Quarter: 2023Q4

REPORT INFORMATION
  Report Type: Spontaneous
  Country: US (occurrence: US)
  Receive Date: 20231017
  Receipt Date: 20231017
  Transmission Date: 20240109
  Serious: No
  Sender: FDA-Public Use
  Company Number: US-PFIZER INC-PV202300093975

PATIENT
  Age: 17 Year
  Sex: Female
  Weight: 38.549 kg

DRUGS (2)
  1. OXBRYTA [Suspect]
     Active Substance: VOXELOTOR
     Dosage: 500 MG TABLETS. TAKE THREE TABLETS ONCE DAILY
     Route: 048
     Dates: start: 20221031
  2. OXBRYTA [Suspect]
     Active Substance: VOXELOTOR
     Dosage: 1500 MG, 1X/DAY ( 3 TABLETS)
     Route: 048

REACTIONS (1)
  - Dyschezia [Unknown]
